FAERS Safety Report 24180075 (Version 1)
Quarter: 2024Q3

REPORT INFORMATION
  Report Type: Spontaneous
  Country: US (occurrence: None)
  Receive Date: 20240806
  Receipt Date: 20240806
  Transmission Date: 20241017
  Serious: Yes (Hospitalization)
  Sender: Public
  Company Number: None

PATIENT
  Age: 71 Year
  Sex: Male

DRUGS (1)
  1. ABIRATERONE [Suspect]
     Active Substance: ABIRATERONE
     Indication: Prostate cancer
     Dosage: FREQUENCY : TWICE A DAY;?

REACTIONS (8)
  - Fall [None]
  - Joint injury [None]
  - Blood pressure increased [None]
  - Asthenia [None]
  - Walking aid user [None]
  - Sciatic nerve injury [None]
  - Arthralgia [None]
  - Cyst [None]
